FAERS Safety Report 11473322 (Version 1)
Quarter: 2015Q3

REPORT INFORMATION
  Report Type: Spontaneous
  Country: US (occurrence: None)
  Receive Date: 20150828
  Receipt Date: 20150828
  Transmission Date: 20151125
  Serious: Yes (Other)
  Sender: FDA-Public Use
  Company Number: AMAG201400496

PATIENT
  Age: 24 Year
  Sex: Male

DRUGS (1)
  1. FERAHEME [Suspect]
     Active Substance: FERUMOXYTOL NON-STOICHIOMETRIC MAGNETITE
     Indication: IRON DEFICIENCY ANAEMIA
     Dosage: IV PUSH
     Dates: start: 20140711, end: 20140711

REACTIONS (3)
  - Unresponsive to stimuli [None]
  - Chest pain [None]
  - Dizziness [None]

NARRATIVE: CASE EVENT DATE: 20140711
